FAERS Safety Report 7687473-6 (Version None)
Quarter: 2011Q3

REPORT INFORMATION
  Report Type: 
  Country: None (occurrence: None)
  Receive Date: 20110817
  Receipt Date: 20110805
  Transmission Date: 20111222
  Serious: Yes (Life-Threatening, Hospitalization)
  Sender: FDA-Public Use
  Company Number: FR-BRISTOL-MYERS SQUIBB COMPANY-15952187

PATIENT
  Age: 70 Year
  Sex: Female

DRUGS (7)
  1. GLYBURIDE [Suspect]
     Indication: TYPE 2 DIABETES MELLITUS
     Route: 048
  2. ISRADIPINE [Concomitant]
     Indication: TYPE 2 DIABETES MELLITUS
     Dosage: LAST INFUSION:07JUN11
     Route: 048
  3. IRBESARTAN + HYDROCHLOROTHIAZIDE [Suspect]
     Dosage: 1 DF= 300MG/12.5MG
     Route: 048
     Dates: end: 20110607
  4. KETOPROFEN [Suspect]
     Indication: SCIATICA
     Route: 048
     Dates: start: 20110606, end: 20110607
  5. METFORMIN HCL [Suspect]
     Indication: TYPE 2 DIABETES MELLITUS
     Route: 048
  6. LEVOTHYROXINE SODIUM [Concomitant]
     Dosage: FORMU: SCORED TABS.DOSAGE: ALSO LEVOTHYROX50MG 1PERDAY. 1 DF = 1/2TAB PER DAY.
     Route: 048
  7. LITHIUM CARBONATE [Suspect]
     Indication: SCIATICA
     Dosage: FORMU: SCORED TAB 1 DF = 1 TABLET
     Route: 048

REACTIONS (5)
  - RENAL FAILURE ACUTE [None]
  - HYPOGLYCAEMIA [None]
  - SCIATICA [None]
  - LACTIC ACIDOSIS [None]
  - TUBULOINTERSTITIAL NEPHRITIS [None]
